FAERS Safety Report 5338803-1 (Version None)
Quarter: 2007Q2

REPORT INFORMATION
  Report Type: 
  Country: None (occurrence: None)
  Receive Date: 20070530
  Receipt Date: 20070522
  Transmission Date: 20071010
  Serious: Yes (Other)
  Sender: FDA-Public Use
  Company Number: US-JNJFOC-20070505609

PATIENT
  Sex: Female
  Weight: 106.6 kg

DRUGS (7)
  1. TYLENOL (CAPLET) [Suspect]
     Route: 048
  2. TYLENOL (CAPLET) [Suspect]
     Indication: PAIN
     Dosage: AS NECESSARY
     Route: 048
  3. HUMULIN N [Interacting]
     Indication: DIABETES MELLITUS
     Dosage: 50 UNITS IN AM AND 25 UNITS IN PM
  4. HUMALOG [Interacting]
     Indication: DIABETES MELLITUS
     Dosage: 15 UNITS IN AM AND 10 UNITS IN PM
  5. ACTOS [Concomitant]
     Indication: DIABETES MELLITUS
  6. NIFEDIPINE [Concomitant]
     Indication: HYPERTENSION
  7. LIPITOR [Concomitant]
     Indication: BLOOD CHOLESTEROL INCREASED

REACTIONS (2)
  - DRUG INTERACTION [None]
  - HYPOGLYCAEMIA [None]
